FAERS Safety Report 6369000-9 (Version None)
Quarter: 2009Q3

REPORT INFORMATION
  Report Type: 
  Country: None (occurrence: None)
  Receive Date: 20090922
  Receipt Date: 20090914
  Transmission Date: 20100115
  Serious: Yes (Hospitalization, Disabling, Other)
  Sender: FDA-Public Use
  Company Number: AT-GILEAD-2009-0024262

PATIENT
  Sex: Male
  Weight: 67 kg

DRUGS (10)
  1. HEPSERA [Suspect]
     Indication: HEPATITIS B
     Route: 048
     Dates: start: 20040526, end: 20060925
  2. HEPSERA [Suspect]
     Route: 048
     Dates: start: 20031125, end: 20040526
  3. LOPINAVIR AND RITONAVIR [Suspect]
     Indication: HIV INFECTION
     Route: 048
     Dates: start: 20030528
  4. PANTOPRAZOLE SODIUM [Concomitant]
     Indication: PROPHYLAXIS AGAINST GASTROINTESTINAL ULCER
     Route: 048
     Dates: start: 20020515, end: 20080915
  5. ZOLEDRONIC ACID [Concomitant]
     Indication: OSTEOPOROSIS
     Dates: start: 20051128, end: 20071220
  6. ZOLEDRONIC ACID [Concomitant]
     Dates: start: 20050119, end: 20051128
  7. COTRIM [Concomitant]
     Indication: ANTIFUNGAL PROPHYLAXIS
     Dates: start: 20031104, end: 20050830
  8. ALENDRONIC ACID [Concomitant]
     Indication: OSTEOPOROSIS
     Dates: start: 20041210, end: 20050401
  9. CAL-D-VITA [Concomitant]
     Dates: start: 20041201
  10. CALCITONIN [Concomitant]
     Indication: OSTEOPOROSIS
     Route: 045
     Dates: start: 20050113, end: 20050501

REACTIONS (6)
  - GLOMERULAR FILTRATION RATE DECREASED [None]
  - OSTEOPOROSIS [None]
  - OVERDOSE [None]
  - PATHOLOGICAL FRACTURE [None]
  - PERIPHERAL ARTERIAL OCCLUSIVE DISEASE [None]
  - SPINAL COMPRESSION FRACTURE [None]
